FAERS Safety Report 10846519 (Version 1)
Quarter: 2015Q1

REPORT INFORMATION
  Report Type: Report from Study
  Country: AU (occurrence: AU)
  Receive Date: 20150220
  Receipt Date: 20150220
  Transmission Date: 20150721
  Serious: Yes (Death, Other)
  Sender: FDA-Public Use
  Company Number: AU-B.I. PHARMACEUTICALS,INC./RIDGEFIELD-2015-BI-08826GD

PATIENT
  Age: 72 Year
  Sex: Male
  Weight: 80 kg

DRUGS (1)
  1. PRADAXA [Suspect]
     Active Substance: DABIGATRAN ETEXILATE MESYLATE
     Indication: ATRIAL FIBRILLATION
     Dosage: 220 MG
     Route: 048

REACTIONS (8)
  - Subdural haematoma [Unknown]
  - Brain midline shift [Unknown]
  - Neurological decompensation [Fatal]
  - Cerebral haemorrhage [Fatal]
  - Brain oedema [Fatal]
  - Fall [Unknown]
  - Skull fracture [Unknown]
  - Puncture site haemorrhage [Unknown]
